FAERS Safety Report 5582894-X (Version None)
Quarter: 2008Q1

REPORT INFORMATION
  Report Type: 
  Country: None (occurrence: None)
  Receive Date: 20080107
  Receipt Date: 20071227
  Transmission Date: 20080703
  Serious: Yes (Death)
  Sender: FDA-Public Use
  Company Number: JP-WYE-H01918008

PATIENT
  Sex: Male

DRUGS (3)
  1. AMIODARONE HCL [Suspect]
     Indication: VENTRICULAR FIBRILLATION
     Dosage: 300 MG PLUS 50% GLUCOSE 20 ML
     Route: 040
     Dates: start: 20071113, end: 20071113
  2. AMIODARONE HCL [Suspect]
     Indication: CARDIO-RESPIRATORY ARREST
     Dosage: 150 MG PLUS 50% GLUCOSE 20 ML
     Route: 040
     Dates: start: 20071113, end: 20071113
  3. EPINEPHRINE [Concomitant]
     Dosage: 6 MG (FREQUENCY UNSPECIFIED)
     Route: 042
     Dates: start: 20071113, end: 20071113

REACTIONS (1)
  - DEATH [None]
